FAERS Safety Report 7740062-7 (Version None)
Quarter: 2011Q3

REPORT INFORMATION
  Report Type: 
  Country: None (occurrence: None)
  Receive Date: 20110909
  Receipt Date: 20110830
  Transmission Date: 20111222
  Serious: Yes (Death)
  Sender: FDA-Public Use
  Company Number: JP-ROCHE-800663

PATIENT
  Sex: Female

DRUGS (16)
  1. TRAMAZOLINE [Concomitant]
     Dosage: NOTE: DOSAGE IS UNCERTAIN. ROUTE: NASAL.
     Route: 050
     Dates: start: 20100316, end: 20100515
  2. OLOPATADINE HCL [Concomitant]
     Dosage: NOTE: DOSAGE IS UNCERTAIN.
     Route: 048
     Dates: start: 20100316
  3. PYDOXAL [Concomitant]
     Route: 048
     Dates: start: 20100803, end: 20101024
  4. DECADRON [Concomitant]
     Dosage: NOTE: DOSAGE IS UNCERTAIN.
     Route: 048
     Dates: start: 20100308, end: 20100824
  5. POSTERISAN [Concomitant]
     Dosage: DOSE FORM: OINTMENT AND CREAM.  NOTE: DOSAGE IS UNCERTAIN.
     Route: 054
  6. CAPECITABINE [Suspect]
     Dosage: 2 WEEKS ADMINISTRATION FOLLOWED BY 1 WEEK REST.
     Route: 048
     Dates: start: 20101004, end: 20101018
  7. DOCETAXEL [Suspect]
     Route: 041
     Dates: start: 20100531, end: 20100823
  8. SODIUM BICARBONATE [Concomitant]
     Dosage: ROUTE: OROPHARINGEAL.
     Route: 050
     Dates: start: 20100308, end: 20100404
  9. PATANOL [Concomitant]
     Route: 047
     Dates: start: 20100316, end: 20100515
  10. CAPECITABINE [Suspect]
     Dosage: 2 WEEKS ADMINISTRATION FOLLOWED BY 1 WEEK REST.
     Route: 048
     Dates: start: 20100531, end: 20100906
  11. DOCETAXEL [Suspect]
     Indication: BREAST CANCER METASTATIC
     Route: 041
     Dates: start: 20100308, end: 20100510
  12. MAGMITT [Concomitant]
     Dosage: NOTE: DOSAGE IS UNCERTAIN.
     Route: 048
  13. CAPECITABINE [Suspect]
     Indication: BREAST CANCER METASTATIC
     Dosage: NOTE: 2 WEEKS ADMINISTRATION FOLLOWED BY 1 WEEK REST
     Route: 048
     Dates: start: 20100308, end: 20100517
  14. DEXAMETHASONE SODIUM PHOSPHATE [Concomitant]
     Dosage: NOTE: DOSAGE IS UNCERTAIN.
     Dates: start: 20100308, end: 20100823
  15. PYDOXAL [Concomitant]
     Dosage: NOTE: DOSAGE IS UNCERTAIN.
     Route: 048
     Dates: start: 20100308, end: 20100328
  16. PASTARON [Concomitant]
     Dosage: DOSE FORM: OINTMENT AND CREAM. NOTE: DOSAGE IS UNCERTAIN.
     Route: 003
     Dates: start: 20100308, end: 20100328

REACTIONS (20)
  - PALMAR-PLANTAR ERYTHRODYSAESTHESIA SYNDROME [None]
  - HYPOTENSION [None]
  - LACRIMATION INCREASED [None]
  - NAUSEA [None]
  - MYALGIA [None]
  - STOMATITIS [None]
  - PIGMENTATION DISORDER [None]
  - ABDOMINAL PAIN LOWER [None]
  - PERIPHERAL SENSORY NEUROPATHY [None]
  - DECREASED APPETITE [None]
  - OEDEMA PERIPHERAL [None]
  - NEUTROPENIA [None]
  - ALOPECIA [None]
  - NEUTROPHIL COUNT DECREASED [None]
  - DISEASE PROGRESSION [None]
  - DYSGEUSIA [None]
  - FATIGUE [None]
  - DIARRHOEA [None]
  - NAIL DISORDER [None]
  - RASH [None]
